FAERS Safety Report 13198545 (Version 2)
Quarter: 2017Q1

REPORT INFORMATION
  Report Type: Report from Study
  Country: CA (occurrence: CA)
  Receive Date: 20170208
  Receipt Date: 20170314
  Transmission Date: 20170428
  Serious: Yes (Disabling)
  Sender: FDA-Public Use
  Company Number: CA-AMGEN-CANSL2017014943

PATIENT
  Age: 64 Year
  Sex: Male
  Weight: 79.3 kg

DRUGS (2)
  1. KYPROLIS [Suspect]
     Active Substance: CARFILZOMIB
     Indication: PLASMA CELL MYELOMA
     Dosage: 54 MG, DAY ONE, TWO, EIGHT, NINE, FIFTEEN, AND SIXTEEN.
     Route: 042
     Dates: start: 20161124
  2. KYPROLIS [Suspect]
     Active Substance: CARFILZOMIB
     Dosage: 54 MG, CYCLE THREE DAY FIFTEEN
     Route: 042

REACTIONS (2)
  - Rib fracture [Recovering/Resolving]
  - Fatigue [Not Recovered/Not Resolved]

NARRATIVE: CASE EVENT DATE: 20170123
